FAERS Safety Report 5464935-3 (Version None)
Quarter: 2007Q3

REPORT INFORMATION
  Report Type: 
  Country: None (occurrence: None)
  Receive Date: 20070921
  Receipt Date: 20070916
  Transmission Date: 20080115
  Serious: Yes (Other)
  Sender: FDA-Public Use
  Company Number: IL-PFIZER INC-2007076844

PATIENT
  Age: 15 Year
  Sex: Male

DRUGS (1)
  1. LUSTRAL [Suspect]
     Indication: DEPRESSION
     Route: 048

REACTIONS (1)
  - OVERDOSE [None]
